FAERS Safety Report 5491815-X (Version None)
Quarter: 2007Q4

REPORT INFORMATION
  Report Type: 
  Country: None (occurrence: None)
  Receive Date: 20071019
  Receipt Date: 20071019
  Transmission Date: 20080405
  Serious: No
  Sender: FDA-Public Use
  Company Number: None

PATIENT
  Age: 58 Year
  Sex: Male
  Weight: 110.2241 kg

DRUGS (2)
  1. LISINOPRIL [Suspect]
     Indication: ESSENTIAL HYPERTENSION
     Dosage: 40MG BID PO
     Route: 048
     Dates: start: 20050308
  2. SPIRONOLACTONE [Suspect]
     Indication: ESSENTIAL HYPERTENSION
     Dosage: 50MG EVERY DAY PO
     Route: 048
     Dates: start: 20050608

REACTIONS (2)
  - ELECTROCARDIOGRAM CHANGE [None]
  - HYPERKALAEMIA [None]
